FAERS Safety Report 4558326-7 (Version None)
Quarter: 2005Q1

REPORT INFORMATION
  Report Type: 
  Country: None (occurrence: None)
  Receive Date: 20050103
  Receipt Date: 20041102
  Transmission Date: 20050727
  Serious: Yes (Other)
  Sender: FDA-Public Use
  Company Number: 2004UW20609

PATIENT
  Age: 68 Year
  Sex: Female
  Weight: 63.5036 kg

DRUGS (6)
  1. CRESTOR [Suspect]
     Indication: BLOOD CHOLESTEROL INCREASED
     Dosage: 10 MG PO
     Route: 048
  2. PLENDIL [Concomitant]
  3. TOPROL-XL [Concomitant]
  4. AMITRIPTYLINE [Concomitant]
  5. SYNTHROID [Concomitant]
  6. FOSAMAX [Concomitant]

REACTIONS (2)
  - DRUG ERUPTION [None]
  - VASCULITIS [None]
